FAERS Safety Report 8045376-1 (Version None)
Quarter: 2012Q1

REPORT INFORMATION
  Report Type: 
  Country: None (occurrence: None)
  Receive Date: 20120113
  Receipt Date: 20120111
  Transmission Date: 20120608
  Serious: Yes (Other)
  Sender: FDA-Public Use
  Company Number: GB-ABBOTT-12P-167-0892298-00

PATIENT
  Age: 56 Year
  Sex: Female

DRUGS (2)
  1. PREDNISOLONE [Concomitant]
     Indication: PRODUCT USED FOR UNKNOWN INDICATION
     Route: 048
  2. HUMIRA [Suspect]
     Indication: RHEUMATOID ARTHRITIS
     Dosage: 1 (TOTAL)
     Route: 058
     Dates: start: 20100326, end: 20100326

REACTIONS (6)
  - TINNITUS [None]
  - NAUSEA [None]
  - PHOTOPHOBIA [None]
  - VOMITING [None]
  - RASH [None]
  - HEADACHE [None]
